FAERS Safety Report 19985621 (Version 1)
Quarter: 2021Q4

REPORT INFORMATION
  Report Type: Spontaneous
  Country: US (occurrence: US)
  Receive Date: 20211021
  Receipt Date: 20211021
  Transmission Date: 20220303
  Serious: No
  Sender: FDA-Public Use
  Company Number: US-TAKEDA-2021TJP107562

PATIENT
  Age: 29 Year
  Sex: Female

DRUGS (7)
  1. TEDUGLUTIDE [Suspect]
     Active Substance: TEDUGLUTIDE
     Indication: Adenomatous polyposis coli
     Dosage: 0.05 MILLIGRAM/KILOGRAM
     Route: 065
  2. TEDUGLUTIDE [Suspect]
     Active Substance: TEDUGLUTIDE
     Indication: Adenomatous polyposis coli
     Dosage: 0.05 MILLIGRAM/KILOGRAM
     Route: 065
  3. TEDUGLUTIDE [Suspect]
     Active Substance: TEDUGLUTIDE
     Indication: Adenomatous polyposis coli
     Dosage: 0.05 MILLIGRAM/KILOGRAM
     Route: 065
  4. TEDUGLUTIDE [Suspect]
     Active Substance: TEDUGLUTIDE
     Indication: Adenomatous polyposis coli
     Dosage: 0.05 MILLIGRAM/KILOGRAM
     Route: 065
  5. EVEROLIMUS [Concomitant]
     Active Substance: EVEROLIMUS
     Indication: Immunosuppression
     Dosage: 0.75 MILLIGRAM
     Route: 065
  6. PREDNISONE [Concomitant]
     Active Substance: PREDNISONE
     Indication: Immunosuppression
     Dosage: 10 MILLIGRAM
     Route: 065
  7. TACROLIMUS [Concomitant]
     Active Substance: TACROLIMUS
     Indication: Immunosuppression
     Dosage: 2 MILLIGRAM
     Route: 065

REACTIONS (1)
  - Gastrointestinal tract adenoma [Unknown]
